FAERS Safety Report 4401291-3 (Version None)
Quarter: 2004Q3

REPORT INFORMATION
  Report Type: 
  Country: None (occurrence: None)
  Receive Date: 20040907
  Receipt Date: 20040212
  Transmission Date: 20050211
  Serious: No
  Sender: FDA-Public Use
  Company Number: US-BRISTOL-MYERS SQUIBB COMPANY-12504239

PATIENT
  Age: 75 Year
  Sex: Female
  Weight: 63 kg

DRUGS (2)
  1. COUMADIN [Suspect]
     Indication: HEART VALVE REPLACEMENT
     Route: 048
  2. BLOOD PRESSURE MEDICATION [Concomitant]

REACTIONS (1)
  - ALOPECIA [None]
